FAERS Safety Report 5576535-5 (Version None)
Quarter: 2007Q4

REPORT INFORMATION
  Report Type: 
  Country: None (occurrence: None)
  Receive Date: 20071228
  Receipt Date: 20071219
  Transmission Date: 20080405
  Serious: Yes (Other)
  Sender: FDA-Public Use
  Company Number: B0500195A

PATIENT
  Age: 75 Year
  Sex: Female

DRUGS (11)
  1. ARIXTRA [Suspect]
     Indication: THROMBOSIS PROPHYLAXIS
     Route: 058
     Dates: start: 20071129, end: 20071213
  2. NEO-MINOPHAGEN-C [Concomitant]
  3. AMLODIN [Concomitant]
     Route: 048
  4. ALOSENN [Concomitant]
     Route: 048
  5. URSO 250 [Concomitant]
     Route: 048
  6. SG [Concomitant]
     Route: 048
  7. DEPAS [Concomitant]
     Route: 048
  8. EURODIN [Concomitant]
     Route: 048
  9. THEOLONG [Concomitant]
     Route: 048
  10. DOGMATYL [Concomitant]
  11. ALLELOCK [Concomitant]
     Route: 048

REACTIONS (2)
  - HEPATIC ENZYME INCREASED [None]
  - LIVER DISORDER [None]
